FAERS Safety Report 7936643-8 (Version None)
Quarter: 2011Q4

REPORT INFORMATION
  Report Type: 
  Country: None (occurrence: None)
  Receive Date: 20111123
  Receipt Date: 20110909
  Transmission Date: 20120403
  Serious: No
  Sender: FDA-Public Use
  Company Number: US-BAYER-2011-084641

PATIENT
  Age: 71 Year
  Sex: Male

DRUGS (12)
  1. CLONAZEPAM [Concomitant]
  2. SYNTHROID [Concomitant]
  3. QUETIAPINE FUMARATE [Concomitant]
  4. BUPROPION HYDROCHLORIDE [Concomitant]
  5. LISINOPRIL [Concomitant]
  6. SIMVASTATIN [Concomitant]
  7. CITALOPRAM HYDROBROMIDE [Concomitant]
  8. OMEPRAZOLE [Concomitant]
  9. FINASTERIDE [Concomitant]
  10. VARDENAFIL HYDROCHLORIDE (LEVITRA) [Suspect]
     Indication: ERECTILE DYSFUNCTION
     Dosage: 10 MG, QD
     Route: 048
     Dates: end: 20110509
  11. VARDENAFIL HYDROCHLORIDE (LEVITRA) [Suspect]
     Dosage: 20 MG, QD
     Route: 048
     Dates: end: 20110509
  12. HYDROBROMIDE [Concomitant]

REACTIONS (1)
  - DRUG INEFFECTIVE [None]
